FAERS Safety Report 7081797-1 (Version None)
Quarter: 2010Q4

REPORT INFORMATION
  Report Type: 
  Country: None (occurrence: None)
  Receive Date: 20101103
  Receipt Date: 20101021
  Transmission Date: 20110411
  Serious: Yes (Hospitalization, Other)
  Sender: FDA-Public Use
  Company Number: DK-ELI_LILLY_AND_COMPANY-DK201010005966

PATIENT
  Sex: Female
  Weight: 88 kg

DRUGS (11)
  1. FONTEX [Suspect]
     Indication: DEPRESSION
     Dosage: 40 MG, DAILY (1/D)
     Route: 048
     Dates: start: 20051121, end: 20100803
  2. FONTEX [Suspect]
     Dosage: 60 MG, WEEKLY (1/W)
     Dates: start: 20081121, end: 20100803
  3. ABILIFY [Concomitant]
     Indication: DEPRESSION
     Dosage: 2.5 MG, DAILY (1/D)
     Route: 048
     Dates: start: 20100112, end: 20100617
  4. LITHIUM CITRATE [Concomitant]
     Indication: DEPRESSION
     Dosage: 18 MMOL, DAILY (1/D)
     Route: 048
     Dates: start: 20041222
  5. IMOCLONE [Concomitant]
     Indication: INSOMNIA
     Dosage: 7.5 MG, AS NEEDED
     Route: 048
     Dates: start: 20091201
  6. ZOPICLONE [Concomitant]
     Dosage: 1000 MG, DAILY (1/D)
     Dates: start: 20070220
  7. NEXIUM [Concomitant]
     Indication: ABDOMINAL DISCOMFORT
     Dosage: 40 MG, DAILY (1/D)
     Route: 048
     Dates: start: 20070320
  8. OXYCONTIN [Concomitant]
     Indication: ARTHRALGIA
     Dosage: 15 MG, DAILY (1/D)
     Route: 048
     Dates: start: 20060206
  9. OXYCODONE HCL [Concomitant]
     Indication: ARTHRALGIA
     Dosage: 20 MG, AS NEEDED
     Route: 048
     Dates: start: 20060818
  10. OXAPAX [Concomitant]
     Indication: MUSCLE RELAXANT THERAPY
     Dosage: 15 MG, AS NEEDED
     Route: 048
     Dates: start: 20080926, end: 20100818
  11. DROSPIRENONE AND ETHINYL ESTRADIOL [Concomitant]
     Indication: CONTRACEPTION
     Dosage: 1 D/F, DAILY (1/D)
     Route: 048

REACTIONS (3)
  - DRUG INTERACTION [None]
  - HOSPITALISATION [None]
  - SEROTONIN SYNDROME [None]
